FAERS Safety Report 20110519 (Version 1)
Quarter: 2021Q4

REPORT INFORMATION
  Report Type: Spontaneous
  Country: US (occurrence: None)
  Receive Date: 20211124
  Receipt Date: 20211124
  Transmission Date: 20220303
  Serious: No
  Sender: FDA-Public Use
  Company Number: None

PATIENT

DRUGS (3)
  1. ORENCIA [Suspect]
     Active Substance: ABATACEPT
  2. POTASSIUM CHLORIDE [Suspect]
     Active Substance: POTASSIUM CHLORIDE
  3. SODIUM CHLORIDE [Suspect]
     Active Substance: SODIUM CHLORIDE

REACTIONS (5)
  - Product distribution issue [None]
  - Wrong product administered [None]
  - Wrong product stored [None]
  - Product preparation error [None]
  - Manufacturing process control procedure not performed [None]
